FAERS Safety Report 5212602-3 (Version None)
Quarter: 2007Q1

REPORT INFORMATION
  Report Type: 
  Country: None (occurrence: None)
  Receive Date: 20070118
  Receipt Date: 20070108
  Transmission Date: 20070707
  Serious: Yes (Other)
  Sender: FDA-Public Use
  Company Number: FR-PFIZER INC-2007002586

PATIENT
  Sex: Female

DRUGS (1)
  1. LYRICA [Suspect]
     Indication: IMMUNE SYSTEM DISORDER
     Dosage: DAILY DOSE:150MG-FREQ:50MG IN THE MORNING 100MG IN THE EVENING

REACTIONS (1)
  - JOINT EFFUSION [None]
